FAERS Safety Report 7556812-9 (Version None)
Quarter: 2011Q2

REPORT INFORMATION
  Report Type: 
  Country: None (occurrence: None)
  Receive Date: 20110620
  Receipt Date: 20110613
  Transmission Date: 20111010
  Serious: Yes (Other)
  Sender: FDA-Public Use
  Company Number: BR-US-EMD SERONO, INC.-7065159

PATIENT
  Sex: Female

DRUGS (5)
  1. METOPROLOL SUCCINATE [Concomitant]
  2. PRASTERONE [Concomitant]
  3. SERTRALINE HYDROCHLORIDE [Concomitant]
  4. SANDRENA [Concomitant]
  5. REBIF [Suspect]
     Indication: RELAPSING-REMITTING MULTIPLE SCLEROSIS
     Dates: start: 20070726, end: 20110101

REACTIONS (3)
  - UTERINE CYST [None]
  - FATIGUE [None]
  - PAIN IN EXTREMITY [None]
